FAERS Safety Report 4295873-X (Version None)
Quarter: 2004Q1

REPORT INFORMATION
  Report Type: 
  Country: None (occurrence: None)
  Receive Date: 20040216
  Receipt Date: 20031125
  Transmission Date: 20041129
  Serious: No
  Sender: FDA-Public Use
  Company Number: US-GLAXOSMITHKLINE-A0441096A

PATIENT
  Sex: Female

DRUGS (4)
  1. LAMICTAL [Suspect]
     Dates: start: 20010101
  2. WELLBUTRIN [Concomitant]
  3. ELAVIL [Concomitant]
  4. OMEGA 3 FATTY ACID [Concomitant]

REACTIONS (1)
  - HEPATIC ENZYME INCREASED [None]
